FAERS Safety Report 17687600 (Version 3)
Quarter: 2020Q2

REPORT INFORMATION
  Report Type: Report from Study
  Country: US (occurrence: US)
  Receive Date: 20200421
  Receipt Date: 20200611
  Transmission Date: 20200714
  Serious: No
  Sender: FDA-Public Use
  Company Number: NVSC2020US105530

PATIENT
  Sex: Female

DRUGS (2)
  1. COSENTYX [Suspect]
     Active Substance: SECUKINUMAB
     Indication: ANKYLOSING SPONDYLITIS
     Dosage: UNK UNK, QW,  (FOR 5 WEEKS AND THEN Q4 WEEKS)
     Route: 058
  2. COSENTYX [Suspect]
     Active Substance: SECUKINUMAB
     Dosage: 150 MG, Q4W (BENEATH THE SKIN USUALLY VIA INJECTION)
     Route: 058
     Dates: start: 202003, end: 20200606

REACTIONS (4)
  - Malaise [Unknown]
  - Pain [Recovering/Resolving]
  - Incorrect dose administered [Unknown]
  - Product leakage [Unknown]
